FAERS Safety Report 13579685 (Version 1)
Quarter: 2017Q2

REPORT INFORMATION
  Report Type: Spontaneous
  Country: US (occurrence: US)
  Receive Date: 20170525
  Receipt Date: 20170525
  Transmission Date: 20170830
  Serious: Yes (Other)
  Sender: FDA-Public Use
  Company Number: US-CLINIGEN GROUP PLC/ CLINIGEN HEALTHCARE LTD-E2B_00005158

PATIENT
  Age: 51 Year
  Sex: Male
  Weight: 81 kg

DRUGS (15)
  1. FOSCAVIR [Suspect]
     Active Substance: FOSCARNET SODIUM
     Dosage: DOSE: 50 MG/KG TOTAL DAILY DOSE: 4
     Route: 042
     Dates: start: 19960702, end: 19960723
  2. ERYTHROMYCINE [Concomitant]
     Active Substance: ERYTHROMYCIN
     Route: 065
  3. LAMUVIDINE [Concomitant]
     Indication: RETROVIRAL INFECTION
     Route: 065
  4. DAPSONE. [Concomitant]
     Active Substance: DAPSONE
     Route: 065
  5. DELAVIRDINE [Concomitant]
     Active Substance: DELAVIRDINE
     Route: 065
  6. LASIX [Concomitant]
     Active Substance: FUROSEMIDE
     Indication: OEDEMA
     Route: 065
  7. SAQUINAVIR [Concomitant]
     Active Substance: SAQUINAVIR
     Indication: RETROVIRAL INFECTION
     Route: 065
  8. FOSCAVIR [Suspect]
     Active Substance: FOSCARNET SODIUM
     Indication: CYTOMEGALOVIRUS CHORIORETINITIS
     Dosage: DOSE: 100 MG/KG TOTAL DAILY DOSE: 9.6
     Route: 042
     Dates: start: 19950401, end: 19960506
  9. K-DUR [Concomitant]
     Active Substance: POTASSIUM CHLORIDE
     Route: 065
  10. NORPRAMIN [Concomitant]
     Active Substance: DESIPRAMINE HYDROCHLORIDE
     Route: 065
  11. NORVIR [Concomitant]
     Active Substance: RITONAVIR
     Route: 065
     Dates: start: 19960703
  12. SPORANOX [Concomitant]
     Active Substance: ITRACONAZOLE
     Route: 065
  13. CYTOGAM [Concomitant]
     Active Substance: HUMAN CYTOMEGALOVIRUS IMMUNE GLOBULIN
     Route: 065
  14. GANCICLOVIR. [Concomitant]
     Active Substance: GANCICLOVIR
     Indication: VIRAL INFECTION
     Route: 065
  15. VERAPAMIL [Concomitant]
     Active Substance: VERAPAMIL HYDROCHLORIDE
     Route: 065

REACTIONS (3)
  - Oedema [Not Recovered/Not Resolved]
  - Urine analysis abnormal [Not Recovered/Not Resolved]
  - Renal impairment [Not Recovered/Not Resolved]

NARRATIVE: CASE EVENT DATE: 19960506
